FAERS Safety Report 8429311 (Version 13)
Quarter: 2014Q3

REPORT INFORMATION
  Report Type: Spontaneous
  Country: JP (occurrence: JP)
  Receive Date: 20120227
  Receipt Date: 20140904
  Transmission Date: 20150326
  Serious: Yes (Hospitalization, Other)
  Sender: FDA-Public Use
  Company Number: PHHY2012JP013916

PATIENT
  Age: 31 Year
  Sex: Male
  Weight: 61 kg

DRUGS (22)
  1. MAGMITT [Concomitant]
     Active Substance: MAGNESIUM OXIDE
     Dosage: 1320 MG, UNK
     Route: 048
  2. EBRANTIL [Concomitant]
     Active Substance: URAPIDIL
     Indication: MULTIPLE SCLEROSIS
     Dosage: 30 MG, UNK
     Route: 048
     Dates: start: 20111202
  3. WARFARIN [Concomitant]
     Active Substance: WARFARIN
     Indication: MULTIPLE SCLEROSIS
     Dosage: 1 MG, UNK
     Route: 048
     Dates: start: 20111220, end: 20120224
  4. LIPITOR [Concomitant]
     Active Substance: ATORVASTATIN CALCIUM
     Indication: DYSLIPIDAEMIA
     Dosage: 5 MG, UNK
     Route: 048
     Dates: start: 20111220
  5. LIORESAL [Concomitant]
     Active Substance: BACLOFEN
     Indication: MULTIPLE SCLEROSIS
     Dosage: 30 MG, UNK
     Route: 048
     Dates: start: 20111220
  6. PARIET [Concomitant]
     Active Substance: RABEPRAZOLE SODIUM
     Indication: MULTIPLE SCLEROSIS
     Dosage: 10 MG, UNK
     Route: 048
     Dates: start: 20111125
  7. DOPACOL [Concomitant]
     Active Substance: CARBIDOPA\LEVODOPA
     Dosage: 100 MG, UNK
     Route: 048
  8. ASPARA-CA [Concomitant]
     Active Substance: CALCIUM ASPARTATE
     Dosage: 200 MG, UNK
     Route: 048
  9. PURSENNID [Concomitant]
     Active Substance: SENNOSIDES A AND B CALCIUM
     Dosage: 2 DF, UNK
     Route: 048
  10. IMURAN [Concomitant]
     Active Substance: AZATHIOPRINE
     Indication: MULTIPLE SCLEROSIS
     Dosage: 100 MG, UNK
     Route: 048
     Dates: start: 20110706, end: 20110810
  11. ALLEGRA [Concomitant]
     Active Substance: FEXOFENADINE HYDROCHLORIDE
     Indication: DERMATITIS ATOPIC
     Dosage: 120 MG, UNK
     Route: 048
  12. WARFARIN POTASSIUM [Concomitant]
     Active Substance: WARFARIN POTASSIUM
     Indication: OEDEMA PERIPHERAL
     Dosage: 1 MG, UNK
     Route: 048
     Dates: start: 20111220, end: 20120224
  13. CERCINE [Concomitant]
     Active Substance: DIAZEPAM
     Indication: MULTIPLE SCLEROSIS
     Dosage: 2 MG, UNK
     Route: 048
     Dates: start: 20110819
  14. METHYCOBAL [Concomitant]
     Active Substance: METHYLCOBALAMIN
     Dosage: 500 MG, UNK
     Route: 048
  15. LANDSEN [Concomitant]
     Active Substance: CLONAZEPAM
     Indication: MULTIPLE SCLEROSIS
     Dosage: 1 MG, UNK
     Route: 048
     Dates: start: 20110818
  16. REBAMIPIDE [Concomitant]
     Active Substance: REBAMIPIDE
     Dosage: 200 MG, UNK
     Route: 048
  17. OLMETEC [Concomitant]
     Active Substance: OLMESARTAN MEDOXOMIL
     Indication: HYPERTENSION
     Dosage: 20 MG, UNK
     Route: 048
     Dates: start: 20110922
  18. GILENYA [Suspect]
     Active Substance: FINGOLIMOD HYDROCHLORIDE
     Indication: MULTIPLE SCLEROSIS
     Dosage: 0.5 MG, QD
     Route: 048
     Dates: start: 20120117, end: 20120214
  19. WARKMIN [Concomitant]
     Active Substance: ALFACALCIDOL
     Indication: OSTEOPOROSIS
     Dosage: 0.25 UG, UNK
     Route: 048
  20. RISUMIC [Concomitant]
     Active Substance: AMEZINIUM METILSULFATE
     Indication: MULTIPLE SCLEROSIS
     Dosage: 15 MG, UNK
     Route: 048
     Dates: start: 20111111
  21. SOLU-MEDROL [Concomitant]
     Active Substance: METHYLPREDNISOLONE SODIUM SUCCINATE
     Indication: MULTIPLE SCLEROSIS
     Dosage: 1000 MG, UNK
     Dates: start: 20110705, end: 20120112
  22. MENESIT [Concomitant]
     Active Substance: CARBIDOPA\LEVODOPA
     Indication: MULTIPLE SCLEROSIS
     Dosage: 400 MG, UNK
     Route: 048

REACTIONS (5)
  - Retinal haemorrhage [Recovered/Resolved]
  - Multiple sclerosis relapse [Not Recovered/Not Resolved]
  - White blood cell count decreased [Unknown]
  - Visual acuity reduced [Recovered/Resolved]
  - Macular oedema [Recovered/Resolved]

NARRATIVE: CASE EVENT DATE: 20120214
